FAERS Safety Report 6065492-3 (Version None)
Quarter: 2009Q1

REPORT INFORMATION
  Report Type: 
  Country: None (occurrence: None)
  Receive Date: 20090130
  Receipt Date: 20090120
  Transmission Date: 20090719
  Serious: Yes (Disabling)
  Sender: FDA-Public Use
  Company Number: OSCN-NO-0901S-0033

PATIENT
  Age: 69 Year
  Sex: Male

DRUGS (3)
  1. OMNISCAN [Suspect]
     Indication: DRUG USE FOR UNKNOWN INDICATION
     Dosage: 15 ML, SINGLE DOSE, I.V. ; 15 ML, SINGLE DOSE, I.V.
     Route: 042
     Dates: start: 20000905, end: 20000905
  2. OMNISCAN [Suspect]
     Indication: DRUG USE FOR UNKNOWN INDICATION
     Dosage: 15 ML, SINGLE DOSE, I.V. ; 15 ML, SINGLE DOSE, I.V.
     Route: 042
     Dates: start: 20021203, end: 20021203
  3. GADOLINIUM (UNSPECIFIED) [Concomitant]

REACTIONS (11)
  - DRUG INTERACTION [None]
  - DYSPEPSIA [None]
  - DYSPNOEA EXERTIONAL [None]
  - DYSSTASIA [None]
  - GAIT DISTURBANCE [None]
  - GASTROOESOPHAGEAL REFLUX DISEASE [None]
  - MUSCULAR WEAKNESS [None]
  - MUSCULOSKELETAL PAIN [None]
  - NEPHROGENIC SYSTEMIC FIBROSIS [None]
  - PAIN IN EXTREMITY [None]
  - RESTLESS LEGS SYNDROME [None]
